FAERS Safety Report 7721093-X (Version None)
Quarter: 2011Q3

REPORT INFORMATION
  Report Type: 
  Country: None (occurrence: None)
  Receive Date: 20110825
  Receipt Date: 20110818
  Transmission Date: 20111222
  Serious: Yes (Other)
  Sender: FDA-Public Use
  Company Number: FR-GDP-11411558

PATIENT
  Sex: Male
  Weight: 65 kg

DRUGS (2)
  1. TETRALYSAL (LYMECYCLINE) 300 MG [Suspect]
     Indication: ROSACEA
     Dosage: 300 MG QD ORAL
     Route: 048
     Dates: start: 20101108, end: 20101116
  2. METRONIDAZOLE [Suspect]
     Indication: ROSACEA
     Dosage: 1 DF QD CUTANEOUS)
     Route: 003
     Dates: start: 20101108, end: 20101110

REACTIONS (3)
  - URTICARIA [None]
  - ERYTHEMA [None]
  - SWELLING FACE [None]
